FAERS Safety Report 19089978 (Version 1)
Quarter: 2021Q2

REPORT INFORMATION
  Report Type: Spontaneous
  Country: RO (occurrence: RO)
  Receive Date: 20210404
  Receipt Date: 20210404
  Transmission Date: 20210717
  Serious: Yes (Other)
  Sender: FDA-Public Use
  Company Number: RO-LUPIN PHARMACEUTICALS INC.-2021-04131

PATIENT
  Age: 73 Year
  Sex: Female

DRUGS (9)
  1. INDOMETHACIN [INDOMETACIN] [Concomitant]
     Active Substance: INDOMETHACIN
     Indication: ULCERATIVE KERATITIS
     Dosage: UNK
     Route: 061
  2. METHOTREXATE. [Concomitant]
     Active Substance: METHOTREXATE
     Indication: RHEUMATOID ARTHRITIS
     Dosage: 2.5 MILLIGRAM, 3 TIMES A WEEK
     Route: 065
  3. TROPICAMIDE. [Suspect]
     Active Substance: TROPICAMIDE
     Indication: CORNEAL PERFORATION
     Dosage: FIVE TIMES A DAY
     Route: 065
  4. TROPICAMIDE. [Suspect]
     Active Substance: TROPICAMIDE
     Indication: MYDRIASIS
  5. PHENYLEPHRINE [Suspect]
     Active Substance: PHENYLEPHRINE HYDROCHLORIDE
     Indication: CORNEAL PERFORATION
     Dosage: FIVE TIMES A DAY
     Route: 065
  6. METHOTREXATE. [Concomitant]
     Active Substance: METHOTREXATE
     Dosage: 7.5 MILLIGRAM
     Route: 065
  7. PHENYLEPHRINE [Suspect]
     Active Substance: PHENYLEPHRINE HYDROCHLORIDE
     Indication: MYDRIASIS
  8. CEFTRIAXONE. [Suspect]
     Active Substance: CEFTRIAXONE
     Indication: CORNEAL PERFORATION
     Dosage: 1 GRAM, BID
     Route: 042
  9. GENTAMICIN. [Concomitant]
     Active Substance: GENTAMICIN
     Indication: ULCERATIVE KERATITIS
     Dosage: UNK
     Route: 061

REACTIONS (1)
  - Drug ineffective [Unknown]
